FAERS Safety Report 7598355-2 (Version None)
Quarter: 2011Q3

REPORT INFORMATION
  Report Type: 
  Country: None (occurrence: None)
  Receive Date: 20110708
  Receipt Date: 20110705
  Transmission Date: 20111222
  Serious: Yes (Death, Hospitalization, Other)
  Sender: FDA-Public Use
  Company Number: PHEH2005US09267

PATIENT
  Sex: Female
  Weight: 87.074 kg

DRUGS (62)
  1. PAMIDRONATE DISODIUM [Suspect]
     Indication: METASTASES TO BONE
     Dosage: 90 MG, QMO
     Dates: start: 20020717, end: 20040701
  2. METHOTREXATE [Concomitant]
  3. FLUOROURACIL [Concomitant]
  4. ZOLADEX [Concomitant]
     Dosage: 3.6 MG, QMO
  5. METOCLOPRAMIDE [Concomitant]
     Dosage: 10 MG, AC AND HS
  6. NOLVADEX [Concomitant]
     Indication: BREAST CANCER
  7. SULBACTAM [Concomitant]
  8. GEMCITABINE [Concomitant]
     Indication: BREAST CANCER
  9. OXYGEN [Concomitant]
  10. THEO-24 [Concomitant]
     Dosage: 400 MG, QD
  11. CIPROFLOXACIN [Concomitant]
     Dosage: 500 MG, BID
     Route: 048
  12. LOPRESSOR [Concomitant]
  13. CYTOXAN [Concomitant]
  14. DYNACIRC [Concomitant]
     Dosage: 2.5 MG, UNK
  15. XANAX [Concomitant]
     Dosage: 0.25 MG, TID
  16. PROMETHAZINE [Concomitant]
  17. LEXAPRO [Concomitant]
  18. LEVAQUIN [Concomitant]
  19. PAMIDRONATE DISODIUM [Suspect]
     Dosage: 90 MG, QMO
     Dates: start: 20030901, end: 20031001
  20. PEPCID [Concomitant]
     Dosage: 20 MG, QD
  21. PRILOSEC [Concomitant]
     Dosage: 20 MG, UNK
  22. NEURONTIN [Concomitant]
     Dosage: 300 MG, TID
     Dates: start: 19990101
  23. OXYCODONE HCL [Concomitant]
  24. BENADRYL ^WARNER-LAMBERT^               /USA/ [Concomitant]
  25. POTASSIUM [Concomitant]
  26. FERROUS SULFATE TAB [Concomitant]
  27. XELODA [Concomitant]
  28. FLEXERIL [Concomitant]
  29. PHENERGAN [Concomitant]
  30. MUCINEX [Concomitant]
  31. NSAID'S [Concomitant]
     Indication: PAIN
  32. TAXOL [Concomitant]
     Dosage: 7 OT, CYCLES
     Dates: start: 19990204, end: 19990318
  33. ZOFRAN [Concomitant]
  34. ZANTAC [Concomitant]
     Dosage: 150 MG, BID
  35. CLEOCIN HYDROCHLORIDE [Concomitant]
  36. SENOKOT                                 /UNK/ [Concomitant]
  37. DECADRON [Concomitant]
  38. LOZOL [Concomitant]
     Dosage: 2.5 MG, UNK
  39. DONNATAL [Concomitant]
     Dosage: UNK UKN, PRN
  40. COMPAZINE [Concomitant]
     Dosage: 10 MG, Q6H
  41. REGLAN [Concomitant]
     Dosage: 10 MG, QID
  42. DURAGESIC-100 [Concomitant]
     Dosage: 50 MG, Q72H
  43. NEXIUM [Concomitant]
  44. DYAZIDE [Concomitant]
  45. HYZAAR [Concomitant]
  46. ATIVAN [Concomitant]
  47. SOLU-MEDROL [Concomitant]
  48. AREDIA [Suspect]
     Indication: METASTASES TO BONE
     Dosage: 90 MG, QMO
     Dates: start: 19970220, end: 20031101
  49. FEMARA [Concomitant]
  50. FASLODEX [Concomitant]
  51. PROPULSID [Concomitant]
     Dosage: 10 MG, AC AND HS
  52. METHADONE HCL [Concomitant]
  53. ARIMIDEX [Concomitant]
  54. METOPROLOL TARTRATE [Concomitant]
  55. ZOMETA [Suspect]
     Indication: METASTASES TO BONE
     Dosage: 4 MG, QMO
     Dates: start: 20011108, end: 20020620
  56. OXYCONTIN [Concomitant]
     Indication: PAIN
  57. NAPROXEN (ALEVE) [Concomitant]
     Dosage: 2 DF, PRN
  58. PROCRIT                            /00909301/ [Concomitant]
  59. DEMADEX [Concomitant]
  60. AMPICILLIN SODIUM [Concomitant]
     Dosage: UNK UKN, Q6H
     Route: 042
  61. ENTEX SOLUTION [Concomitant]
  62. DROPERIDOL [Concomitant]

REACTIONS (95)
  - PALPITATIONS [None]
  - ASTHMA [None]
  - BONE DISORDER [None]
  - SWELLING FACE [None]
  - TOOTH DISORDER [None]
  - WOUND DEHISCENCE [None]
  - ARRHYTHMIA [None]
  - DENTAL CARIES [None]
  - GINGIVITIS [None]
  - DEHYDRATION [None]
  - WEIGHT DECREASED [None]
  - METASTASES TO LUNG [None]
  - RENAL FAILURE CHRONIC [None]
  - PNEUMONIA [None]
  - BONE SWELLING [None]
  - IMPAIRED HEALING [None]
  - EXOSTOSIS [None]
  - INFLAMMATION [None]
  - DYSPNOEA EXERTIONAL [None]
  - INTERSTITIAL LUNG DISEASE [None]
  - ANXIETY [None]
  - MUCOSAL INFLAMMATION [None]
  - PAIN IN JAW [None]
  - BREATH ODOUR [None]
  - FUNGAL INFECTION [None]
  - OSTEOSCLEROSIS [None]
  - METASTASES TO BONE [None]
  - HYPERTENSION [None]
  - BLOOD MAGNESIUM INCREASED [None]
  - HYPERHIDROSIS [None]
  - ANAEMIA [None]
  - DYSFUNCTIONAL UTERINE BLEEDING [None]
  - MYALGIA [None]
  - BLOOD CREATININE INCREASED [None]
  - LACERATION [None]
  - OSTEONECROSIS OF JAW [None]
  - MOUTH ULCERATION [None]
  - TONGUE DRY [None]
  - CARDIAC STRESS TEST ABNORMAL [None]
  - CHEST PAIN [None]
  - OSTEORADIONECROSIS [None]
  - RASH [None]
  - SINUS BRADYCARDIA [None]
  - MUSCULOSKELETAL PAIN [None]
  - DRY MOUTH [None]
  - BACTERIAL TEST POSITIVE [None]
  - TONGUE INJURY [None]
  - DYSPNOEA [None]
  - AZOTAEMIA [None]
  - CARDIAC FAILURE CONGESTIVE [None]
  - ORAL INFECTION [None]
  - MYOCARDIAL INFARCTION [None]
  - LUNG DISORDER [None]
  - DYSURIA [None]
  - UPPER-AIRWAY COUGH SYNDROME [None]
  - DIZZINESS [None]
  - DEATH [None]
  - PLEURAL EFFUSION [None]
  - LIP ULCERATION [None]
  - PERIODONTAL DISEASE [None]
  - TACHYCARDIA [None]
  - ARTHRALGIA [None]
  - URINARY TRACT INFECTION [None]
  - HYPOAESTHESIA [None]
  - OSTEOARTHRITIS [None]
  - FOOD POISONING [None]
  - OEDEMA PERIPHERAL [None]
  - HYPOKALAEMIA [None]
  - HYPONATRAEMIA [None]
  - CHRONIC OBSTRUCTIVE PULMONARY DISEASE [None]
  - OSTEOMYELITIS [None]
  - POOR DENTAL CONDITION [None]
  - SIALOADENITIS [None]
  - CARDIOMEGALY [None]
  - BACK PAIN [None]
  - AORTIC VALVE SCLEROSIS [None]
  - TRICUSPID VALVE SCLEROSIS [None]
  - CANDIDIASIS [None]
  - NAUSEA [None]
  - GASTROENTERITIS VIRAL [None]
  - DECREASED APPETITE [None]
  - ASTHENIA [None]
  - FATIGUE [None]
  - ATRIAL FIBRILLATION [None]
  - SUBCUTANEOUS EMPHYSEMA [None]
  - FALL [None]
  - STOMATITIS [None]
  - DENTURE WEARER [None]
  - DEAFNESS BILATERAL [None]
  - INTERVERTEBRAL DISC PROTRUSION [None]
  - INTERVERTEBRAL DISC DISORDER [None]
  - PULMONARY HYPERTENSION [None]
  - VOMITING [None]
  - SPINAL COLUMN STENOSIS [None]
  - ALOPECIA [None]
